FAERS Safety Report 6668668-7 (Version None)
Quarter: 2010Q2

REPORT INFORMATION
  Report Type: 
  Country: None (occurrence: None)
  Receive Date: 20100401
  Receipt Date: 20100310
  Transmission Date: 20101027
  Serious: Yes (Life-Threatening, Hospitalization)
  Sender: FDA-Public Use
  Company Number: PT-0047-2010

PATIENT
  Sex: Female

DRUGS (6)
  1. AMPHOTERICIN (AMPHOTERECIN B) (INJECTION FOR INFUSION) (AMPHOTERECIN B [Suspect]
     Indication: FUNGAL INFECTION
     Dosage: 200 MG (200 MG, 1 IN 1 D) INTRAVENOUS
     Route: 042
     Dates: start: 20100206
  2. ZYVOXID (LINEZOLID) (INJECTION FOR INFUSION) [Suspect]
     Indication: STAPHYLOCOCCAL INFECTION
     Dosage: 1200 MG (600 MG, 2 IN 1 ) INTRAVENOUS
     Route: 042
     Dates: start: 20100127, end: 20100206
  3. TAZOCIN (PIP/TAZO) (UNKNOWN) [Concomitant]
  4. TARGOCID [Concomitant]
  5. CELLCEPT (MYCOPHENOLATE MOFETIL) (UNKNOWN) [Concomitant]
  6. PROGRAF [Concomitant]

REACTIONS (5)
  - CHILLS [None]
  - NAUSEA [None]
  - PANCYTOPENIA [None]
  - PYREXIA [None]
  - VOMITING [None]
